FAERS Safety Report 5267297-X (Version None)
Quarter: 2007Q1

REPORT INFORMATION
  Report Type: 
  Country: None (occurrence: None)
  Receive Date: 20070316
  Receipt Date: 20070309
  Transmission Date: 20070707
  Serious: Yes (Disabling)
  Sender: FDA-Public Use
  Company Number: JP-JPN-A200700551

PATIENT
  Age: 51 Year
  Sex: Male

DRUGS (6)
  1. PAXIL [Suspect]
     Indication: MAJOR DEPRESSION
     Route: 048
     Dates: start: 20050101, end: 20051026
  2. TOLEDOMIN [Suspect]
     Indication: MAJOR DEPRESSION
     Dosage: 25MG FOUR TIMES PER DAY
     Dates: start: 20050414, end: 20051026
  3. DESYREL [Suspect]
     Route: 048
     Dates: start: 20050327, end: 20051028
  4. SEROQUEL [Concomitant]
     Indication: MAJOR DEPRESSION
     Route: 048
     Dates: start: 20050327
  5. LENDORMIN [Concomitant]
     Indication: INSOMNIA
     Dosage: .25MG UNKNOWN
     Route: 048
     Dates: start: 20050327
  6. SILECE [Concomitant]
     Indication: INSOMNIA
     Dosage: 2MG UNKNOWN
     Route: 048
     Dates: start: 20050428

REACTIONS (5)
  - DELUSION OF REFERENCE [None]
  - INSOMNIA [None]
  - LOGORRHOEA [None]
  - MANIA [None]
  - PSYCHOMOTOR HYPERACTIVITY [None]
